FAERS Safety Report 17719983 (Version 1)
Quarter: 2020Q2

REPORT INFORMATION
  Report Type: Report from Study
  Country: CN (occurrence: CN)
  Receive Date: 20200428
  Receipt Date: 20200428
  Transmission Date: 20200714
  Serious: Yes (Other)
  Sender: FDA-Public Use
  Company Number: CN-ASTRAZENECA-2020SE55967

PATIENT
  Age: 42 Year
  Sex: Female

DRUGS (8)
  1. PACLITAXEL. [Concomitant]
     Active Substance: PACLITAXEL
     Indication: ADENOCARCINOMA
     Dosage: 8 CYCLES
     Route: 065
  2. CARBOPLATIN. [Concomitant]
     Active Substance: CARBOPLATIN
     Indication: ADENOCARCINOMA
     Dosage: 3 CYCLES
     Route: 065
  3. PACLITAXEL. [Concomitant]
     Active Substance: PACLITAXEL
     Indication: ADENOCARCINOMA
     Dosage: 4 CYCLES
     Route: 065
  4. PACLITAXEL. [Concomitant]
     Active Substance: PACLITAXEL
     Indication: ADENOCARCINOMA
     Dosage: 3 CYCLES
     Route: 065
  5. OLAPARIB. [Suspect]
     Active Substance: OLAPARIB
     Indication: OVARIAN CANCER
     Route: 048
  6. OLAPARIB. [Suspect]
     Active Substance: OLAPARIB
     Indication: GENE MUTATION
     Route: 048
  7. CARBOPLATIN. [Concomitant]
     Active Substance: CARBOPLATIN
     Indication: ADENOCARCINOMA
     Dosage: 4 CYCLES
     Route: 065
  8. CARBOPLATIN. [Concomitant]
     Active Substance: CARBOPLATIN
     Indication: ADENOCARCINOMA
     Dosage: 8 CYCLES
     Route: 065

REACTIONS (2)
  - Malignant neoplasm progression [Unknown]
  - Drug ineffective [Unknown]
